FAERS Safety Report 16075334 (Version 5)
Quarter: 2019Q3

REPORT INFORMATION
  Report Type: Spontaneous
  Country: FR (occurrence: FR)
  Receive Date: 20190315
  Receipt Date: 20190925
  Transmission Date: 20191004
  Serious: Yes (Other)
  Sender: FDA-Public Use
  Company Number: FR-ROCHE-2282095

PATIENT
  Sex: Female
  Weight: 57.8 kg

DRUGS (3)
  1. XELODA [Suspect]
     Active Substance: CAPECITABINE
     Indication: COLON CANCER
     Dosage: 3DF TWICE A DAY
     Route: 048
     Dates: start: 201902
  2. OPTIJECT [Concomitant]
     Active Substance: IOVERSOL
     Route: 065
     Dates: start: 20190801
  3. XELODA [Suspect]
     Active Substance: CAPECITABINE
     Route: 048
     Dates: start: 201903

REACTIONS (8)
  - Pruritus [Not Recovered/Not Resolved]
  - Red blood cell count decreased [Unknown]
  - Onychoclasis [Unknown]
  - Skin reaction [Not Recovered/Not Resolved]
  - Abdominal distension [Unknown]
  - Diarrhoea [Unknown]
  - Skin plaque [Unknown]
  - Burning sensation [Not Recovered/Not Resolved]
